FAERS Safety Report 9642772 (Version 2)
Quarter: 2013Q4

REPORT INFORMATION
  Report Type: Spontaneous
  Country: FR (occurrence: FR)
  Receive Date: 20131024
  Receipt Date: 20131031
  Transmission Date: 20140711
  Serious: Yes (Other)
  Sender: FDA-Public Use
  Company Number: FR-009507513-1310FRA006420

PATIENT
  Age: 84 Year
  Sex: Female

DRUGS (19)
  1. SINEMET 100 MG / 10 MG COMPRIME SECABLE [Suspect]
     Dosage: 1 DF, TID
     Route: 048
     Dates: start: 20130605, end: 20130624
  2. CEFTRIAXONE SODIUM [Suspect]
     Indication: PYELONEPHRITIS
     Dosage: 1 DF, QD
     Route: 042
     Dates: start: 20130531, end: 20130605
  3. OFLOCET (OFLOXACIN) [Suspect]
     Dosage: 2 DF, QD
     Route: 048
     Dates: start: 20130605, end: 20130612
  4. CALCIPARINE [Suspect]
     Dosage: 1 DF, QD
     Route: 058
     Dates: start: 20130605
  5. LASILIX [Suspect]
     Dosage: 1 DF, QD
     Route: 042
     Dates: start: 20130605, end: 20130607
  6. AMLOR [Concomitant]
     Dosage: 1 DF, QD
     Route: 048
  7. CORDARONE [Concomitant]
     Dosage: 1 DF, QD
  8. KALEORID [Concomitant]
     Dosage: 1 DF, QD
     Route: 048
  9. TRIVASTAL [Concomitant]
     Dosage: 1 DF, QD
     Route: 048
  10. ALPRAZOLAM [Concomitant]
     Dosage: 1 DF, QD
     Route: 048
  11. DAFALGAN [Concomitant]
     Dosage: 2 DF, TID
     Route: 048
     Dates: start: 20130605, end: 20130610
  12. ZOLPIDEM TARTRATE [Concomitant]
     Dosage: UNK
     Dates: start: 20130606, end: 20130624
  13. VIRLIX [Concomitant]
     Dosage: 1 DF, QD
     Route: 048
     Dates: start: 20130606, end: 20130610
  14. DEXTROSE [Concomitant]
     Dosage: 2 G, Q24H
     Dates: start: 20130606, end: 20130607
  15. DIFFU-K [Concomitant]
     Dosage: 3 DF, QD
     Dates: start: 20130606, end: 20130611
  16. CETIRIZINE ARROW [Concomitant]
     Dosage: 1 DF, QD
     Route: 048
  17. OXYGEN [Concomitant]
     Dosage: UNK
     Route: 055
     Dates: start: 20130605, end: 20130606
  18. SODIUM CHLORIDE [Concomitant]
     Dosage: 2 DF, QD
     Route: 048
     Dates: start: 20130608, end: 20130624
  19. GENTAMICINE [Concomitant]
     Dosage: UNK
     Route: 042
     Dates: start: 20130531, end: 20130602

REACTIONS (1)
  - Dermatitis allergic [Recovered/Resolved]
